FAERS Safety Report 14171845 (Version 1)
Quarter: 2017Q4

REPORT INFORMATION
  Report Type: Spontaneous
  Country: FR (occurrence: FR)
  Receive Date: 20171108
  Receipt Date: 20171108
  Transmission Date: 20180321
  Serious: Yes (Life-Threatening)
  Sender: FDA-Public Use
  Company Number: FR-MALLINCKRODT-T201704458

PATIENT
  Sex: Female
  Weight: 3 kg

DRUGS (1)
  1. OFIRMEV [Suspect]
     Active Substance: ACETAMINOPHEN
     Indication: HAEMATOMA
     Dosage: 845 MG
     Route: 042
     Dates: start: 20030330, end: 20030331

REACTIONS (6)
  - Drug level increased [Unknown]
  - Aspartate aminotransferase increased [Unknown]
  - Traumatic delivery [Unknown]
  - Alanine aminotransferase increased [Unknown]
  - Neonatal respiratory distress syndrome [Unknown]
  - Overdose [Unknown]
